FAERS Safety Report 4497568-6 (Version None)
Quarter: 2004Q4

REPORT INFORMATION
  Report Type: 
  Country: None (occurrence: None)
  Receive Date: 20041108
  Receipt Date: 20041025
  Transmission Date: 20050328
  Serious: Yes (Death, Other)
  Sender: FDA-Public Use
  Company Number: JP-JNJFOC-20040702704

PATIENT
  Sex: Male

DRUGS (3)
  1. DUROTEP [Suspect]
     Route: 062
  2. DUROTEP [Suspect]
     Indication: CANCER PAIN
     Route: 062
  3. MORPHINE HYDROCHLORIDE [Suspect]
     Indication: CANCER PAIN

REACTIONS (2)
  - CONFUSIONAL STATE [None]
  - RESPIRATORY DEPRESSION [None]
